FAERS Safety Report 25275246 (Version 6)
Quarter: 2025Q4

REPORT INFORMATION
  Report Type: Spontaneous
  Country: UA (occurrence: UA)
  Receive Date: 20250506
  Receipt Date: 20251005
  Transmission Date: 20260117
  Serious: Yes (Hospitalization, Other)
  Sender: IPSEN BIOPHARMACEUTICALS, INC.
  Company Number: UA-SERVIER-S25006005

PATIENT
  Age: 64 Year
  Sex: Female
  Weight: 60 kg

DRUGS (8)
  1. ONIVYDE [Suspect]
     Active Substance: IRINOTECAN HYDROCHLORIDE
     Indication: Pancreatic carcinoma stage IV
     Dosage: 50 MG/M2, EVERY 2 WEEKS
     Route: 042
     Dates: start: 20241224, end: 20241224
  2. ONIVYDE [Suspect]
     Active Substance: IRINOTECAN HYDROCHLORIDE
     Dosage: DOSE REDUCED WITH 25%, EVERY 2 WEEKS
     Dates: start: 2025, end: 20250616
  3. OXALIPLATIN [Suspect]
     Active Substance: OXALIPLATIN
     Indication: Pancreatic carcinoma stage IV
     Dosage: UNK
     Dates: start: 20241224, end: 20241224
  4. OXALIPLATIN [Suspect]
     Active Substance: OXALIPLATIN
     Dosage: DOSE REDUCTION OF 25 %
     Dates: start: 2025, end: 20250616
  5. LEUCOVORIN [Suspect]
     Active Substance: LEUCOVORIN\LEUCOVORIN CALCIUM
     Indication: Pancreatic carcinoma stage IV
     Dosage: UNK
     Dates: start: 20241224, end: 20241224
  6. LEUCOVORIN [Suspect]
     Active Substance: LEUCOVORIN\LEUCOVORIN CALCIUM
     Dosage: DOSE REDUCTION OF 25 %
     Dates: start: 2025, end: 20250616
  7. FLUOROURACIL [Suspect]
     Active Substance: FLUOROURACIL
     Indication: Pancreatic carcinoma stage IV
     Dosage: UNK
     Dates: start: 20241224, end: 20241224
  8. FLUOROURACIL [Suspect]
     Active Substance: FLUOROURACIL
     Dosage: DOSE REDUCTION OF 25 %
     Dates: start: 2025, end: 20250616

REACTIONS (9)
  - Leukopenia [Recovered/Resolved]
  - Nausea [Recovered/Resolved]
  - Diarrhoea [Recovered/Resolved]
  - General physical health deterioration [Recovered/Resolved]
  - Metastases to liver [Unknown]
  - Thrombocytopenia [Recovered/Resolved]
  - Pancytopenia [Recovered/Resolved]
  - Product use issue [Unknown]
  - Nausea [Recovered/Resolved]

NARRATIVE: CASE EVENT DATE: 20241224
